FAERS Safety Report 15988349 (Version 1)
Quarter: 2019Q1

REPORT INFORMATION
  Report Type: Spontaneous
  Country: CN (occurrence: CN)
  Receive Date: 20190221
  Receipt Date: 20190221
  Transmission Date: 20190418
  Serious: Yes (Hospitalization, Other)
  Sender: FDA-Public Use
  Company Number: CN-LUPIN PHARMACEUTICALS INC.-2019-01012

PATIENT
  Age: 67 Year
  Sex: Male

DRUGS (4)
  1. DONEPEZIL. [Suspect]
     Active Substance: DONEPEZIL
     Dosage: 5 MILLIGRAM, BID
     Route: 048
     Dates: start: 20171119, end: 20171219
  2. CAPTOPRIL. [Concomitant]
     Active Substance: CAPTOPRIL
     Indication: HYPERTENSION
     Dosage: 12.5 MILLIGRAM, TID
     Route: 048
     Dates: start: 20171108
  3. DONEPEZIL. [Suspect]
     Active Substance: DONEPEZIL
     Indication: VASCULAR DEMENTIA
     Dosage: 5 MILLIGRAM, QD
     Route: 048
     Dates: start: 20171108
  4. OLANZAPINE. [Concomitant]
     Active Substance: OLANZAPINE
     Indication: VASCULAR DEMENTIA
     Dosage: 10 MILLIGRAM, BID
     Route: 048
     Dates: start: 20171108

REACTIONS (8)
  - Oral discomfort [Recovered/Resolved]
  - Salivary hypersecretion [Recovered/Resolved]
  - Musculoskeletal stiffness [Recovered/Resolved]
  - Tremor [Recovered/Resolved]
  - Dysphagia [Recovered/Resolved]
  - Extrapyramidal disorder [Recovered/Resolved]
  - Aphasia [Recovered/Resolved]
  - Feeling abnormal [Recovered/Resolved]

NARRATIVE: CASE EVENT DATE: 20171120
